FAERS Safety Report 7751326-5 (Version None)
Quarter: 2011Q3

REPORT INFORMATION
  Report Type: 
  Country: None (occurrence: None)
  Receive Date: 20110914
  Receipt Date: 20110907
  Transmission Date: 20111222
  Serious: Yes (Other)
  Sender: FDA-Public Use
  Company Number: US-ABBOTT-11P-163-0852362-00

PATIENT
  Sex: Female

DRUGS (4)
  1. ANDROGEL [Suspect]
     Indication: MATERNAL EXPOSURE DURING PREGNANCY
     Route: 050
     Dates: start: 20080101
  2. ANDROGEL [Suspect]
  3. ANDROGEL [Suspect]
     Indication: MATERNAL EXPOSURE DURING PREGNANCY
     Route: 050
  4. ANDROGEL [Suspect]

REACTIONS (2)
  - PATERNAL DRUGS AFFECTING FOETUS [None]
  - ABORTION SPONTANEOUS [None]
